FAERS Safety Report 16645334 (Version 2)
Quarter: 2020Q1

REPORT INFORMATION
  Report Type: Spontaneous
  Country: PT (occurrence: PT)
  Receive Date: 20190729
  Receipt Date: 20200205
  Transmission Date: 20200409
  Serious: Yes (Disabling)
  Sender: FDA-Public Use
  Company Number: PT-ANIPHARMA-2019-PT-000017

PATIENT
  Age: 34 Year
  Sex: Female
  Weight: 65 kg

DRUGS (5)
  1. VENLAFAXINE [Concomitant]
     Active Substance: VENLAFAXINE HYDROCHLORIDE
     Dosage: 150MG
     Route: 065
  2. FEMAL [Concomitant]
     Dosage: UNK
     Route: 065
  3. GOSERELIN [Suspect]
     Active Substance: GOSERELIN
     Route: 058
  4. LORAZEPAM (NON-SPECIFIC) [Concomitant]
     Active Substance: LORAZEPAM
     Dosage: 2.5MG
  5. ANASTROZOLE. [Suspect]
     Active Substance: ANASTROZOLE
     Indication: BREAST CANCER
     Dosage: 1 MG DAILY
     Route: 048
     Dates: start: 20151207

REACTIONS (3)
  - Fatigue [Recovered/Resolved with Sequelae]
  - Pain in extremity [Recovered/Resolved with Sequelae]
  - Feeling hot [Recovered/Resolved with Sequelae]

NARRATIVE: CASE EVENT DATE: 201601
